FAERS Safety Report 6063534-2 (Version None)
Quarter: 2009Q1

REPORT INFORMATION
  Report Type: 
  Country: None (occurrence: None)
  Receive Date: 20090203
  Receipt Date: 20090126
  Transmission Date: 20090719
  Serious: Yes (Hospitalization)
  Sender: FDA-Public Use
  Company Number: BR-ABBOTT-07P-020-0356324-00

PATIENT
  Sex: Female

DRUGS (3)
  1. HUMIRA [Suspect]
     Indication: RHEUMATOID ARTHRITIS
     Route: 058
     Dates: start: 20060101, end: 20081001
  2. IBANDRONIC ACID [Concomitant]
     Indication: OSTEOPOROSIS
     Dosage: NOT REPORTED
     Dates: start: 20060601
  3. MAGISTRAL FORMULA [Concomitant]
     Indication: RHEUMATOID ARTHRITIS
     Route: 048
     Dates: start: 20050101

REACTIONS (8)
  - ABASIA [None]
  - BLOOD PRESSURE DECREASED [None]
  - CONSTIPATION [None]
  - DISLOCATION OF JOINT PROSTHESIS [None]
  - PNEUMONIA [None]
  - RASH MACULO-PAPULAR [None]
  - URINARY RETENTION [None]
  - URINARY TRACT INFECTION [None]
